FAERS Safety Report 5314222-9 (Version None)
Quarter: 2007Q2

REPORT INFORMATION
  Report Type: 
  Country: None (occurrence: None)
  Receive Date: 20070426
  Receipt Date: 20070412
  Transmission Date: 20071010
  Serious: Yes (Other)
  Sender: FDA-Public Use
  Company Number: B0467060A

PATIENT
  Age: 52 Year
  Sex: Male

DRUGS (7)
  1. EPIVIR [Suspect]
     Indication: HIV INFECTION
  2. STAVUDINE [Suspect]
     Indication: HIV INFECTION
  3. RITONAVIR [Concomitant]
  4. AMPRENAVIR [Concomitant]
  5. CO-TRIMOXAZOLE [Concomitant]
  6. VALPROIC ACID [Concomitant]
  7. SPIRONOLACTONE [Concomitant]

REACTIONS (22)
  - ABDOMINAL PAIN [None]
  - ALANINE AMINOTRANSFERASE INCREASED [None]
  - ASPARTATE AMINOTRANSFERASE INCREASED [None]
  - ASTHENIA [None]
  - BLOOD BICARBONATE DECREASED [None]
  - BLOOD LACTIC ACID INCREASED [None]
  - BLOOD PH DECREASED [None]
  - EPIDERMAL NECROSIS [None]
  - GAMMA-GLUTAMYLTRANSFERASE INCREASED [None]
  - HEPATIC STEATOSIS [None]
  - HEPATOMEGALY [None]
  - LYMPHOCYTIC INFILTRATION [None]
  - MITOCHONDRIAL TOXICITY [None]
  - NAUSEA [None]
  - PCO2 DECREASED [None]
  - PYREXIA [None]
  - RASH [None]
  - RASH ERYTHEMATOUS [None]
  - RASH PAPULAR [None]
  - SKIN LESION [None]
  - TACHYCARDIA [None]
  - TACHYPNOEA [None]
